FAERS Safety Report 18044780 (Version 1)
Quarter: 2020Q3

REPORT INFORMATION
  Report Type: Spontaneous
  Country: US (occurrence: US)
  Receive Date: 20200720
  Receipt Date: 20200720
  Transmission Date: 20201103
  Serious: Yes (Other)
  Sender: FDA-Public Use
  Company Number: US-EDGEWELL PERSONAL CARE, LLC-2087508

PATIENT
  Age: 16 Year
  Sex: Female

DRUGS (1)
  1. BANANA BOAT ULTRAMIST SPORT PERFORMANCE SPF 50 [Suspect]
     Active Substance: AVOBENZONE\HOMOSALATE\OCTINOXATE\OCTISALATE\OCTOCRYLENE\OXYBENZONE
     Indication: PROPHYLAXIS AGAINST SOLAR RADIATION
     Route: 061
     Dates: start: 20200702, end: 20200702

REACTIONS (4)
  - Dehydration [Recovering/Resolving]
  - Blister [Recovering/Resolving]
  - Nausea [Recovering/Resolving]
  - Sunburn [Recovering/Resolving]

NARRATIVE: CASE EVENT DATE: 20200702
